FAERS Safety Report 26138640 (Version 1)
Quarter: 2025Q4

REPORT INFORMATION
  Report Type: Spontaneous
  Country: US (occurrence: US)
  Receive Date: 20251210
  Receipt Date: 20251210
  Transmission Date: 20260118
  Serious: Yes (Other)
  Sender: AMGEN
  Company Number: US-AMGEN-USASP2025238921

PATIENT
  Age: 65 Year
  Sex: Male

DRUGS (2)
  1. KRYSTEXXA [Suspect]
     Active Substance: PEGLOTICASE
     Indication: Product used for unknown indication
     Dosage: UNK
     Route: 065
     Dates: start: 20190801
  2. KRYSTEXXA [Suspect]
     Active Substance: PEGLOTICASE
     Dosage: UNK
     Route: 065
     Dates: start: 20200201, end: 20200201

REACTIONS (1)
  - Yao syndrome [Unknown]

NARRATIVE: CASE EVENT DATE: 20250101
